FAERS Safety Report 8812061 (Version 1)
Quarter: 2012Q4

REPORT INFORMATION
  Report Type: 
  Country: US (occurrence: US)
  Receive Date: 20120927
  Receipt Date: 20120927
  Transmission Date: 20130627
  Serious: No
  Sender: FDA-Public Use
  Company Number: US-ASTRAZENECA-2012SE71555

PATIENT
  Sex: Female

DRUGS (2)
  1. SYMBICORT [Suspect]
     Indication: DYSPNOEA
     Route: 055
     Dates: end: 20120912
  2. SYMBICORT [Suspect]
     Indication: DYSPNOEA
     Route: 055
     Dates: end: 20120912

REACTIONS (2)
  - Pollakiuria [Unknown]
  - Drug dose omission [Unknown]
